FAERS Safety Report 25894142 (Version 1)
Quarter: 2025Q4

REPORT INFORMATION
  Report Type: Spontaneous
  Country: US (occurrence: US)
  Receive Date: 20251008
  Receipt Date: 20251008
  Transmission Date: 20260117
  Serious: Yes (Hospitalization, Other)
  Sender: EMCURE PHARMACEUTICALS LTD
  Company Number: US-AVET LIFESCIENCES LTD-2025-AVET-000310

PATIENT
  Age: 89 Year
  Sex: Female
  Weight: 34.3 kg

DRUGS (2)
  1. ACETAMINOPHEN [Suspect]
     Active Substance: ACETAMINOPHEN
     Indication: Back pain
     Dosage: 1000?MG EVERY 8?H (BY 14TH MAY)
     Route: 065
  2. CEPHALEXIN [Concomitant]
     Active Substance: CEPHALEXIN
     Dosage: UNK
     Route: 065

REACTIONS (4)
  - Overdose [Unknown]
  - Acute hepatic failure [Recovering/Resolving]
  - Acute kidney injury [Recovered/Resolved]
  - Hepatic encephalopathy [Recovering/Resolving]
